FAERS Safety Report 6748214-X (Version None)
Quarter: 2010Q2

REPORT INFORMATION
  Report Type: 
  Country: None (occurrence: None)
  Receive Date: 20100601
  Receipt Date: 20100517
  Transmission Date: 20101027
  Serious: Yes (Death)
  Sender: FDA-Public Use
  Company Number: US-ASTRAZENECA-2007UW11377

PATIENT
  Sex: Female

DRUGS (5)
  1. SEROQUEL [Suspect]
     Route: 048
     Dates: start: 20060112
  2. AMBIEN [Concomitant]
     Dates: start: 20060127
  3. AMITRIPTYLINE [Concomitant]
     Dates: start: 20060104
  4. ALPRAZOLAM [Concomitant]
     Dates: start: 20051228
  5. EFFEXOR [Concomitant]
     Dates: start: 20060118

REACTIONS (2)
  - DEATH [None]
  - DIABETES MELLITUS [None]
